FAERS Safety Report 14744253 (Version 3)
Quarter: 2018Q3

REPORT INFORMATION
  Report Type: Report from Study
  Country: US (occurrence: US)
  Receive Date: 20180411
  Receipt Date: 20180907
  Transmission Date: 20181010
  Serious: Yes (Other)
  Sender: FDA-Public Use
  Company Number: US-GILEAD-2018-0331929

PATIENT
  Age: 43 Year
  Sex: Female

DRUGS (2)
  1. AMBRISENTAN [Suspect]
     Active Substance: AMBRISENTAN
     Indication: PULMONARY ARTERIAL HYPERTENSION
     Dosage: 5 MG, QD
     Route: 065
  2. AMBRISENTAN [Suspect]
     Active Substance: AMBRISENTAN
     Indication: HEART DISEASE CONGENITAL

REACTIONS (9)
  - Neoplasm [Unknown]
  - Hypoaesthesia [Unknown]
  - Cardiac disorder [Not Recovered/Not Resolved]
  - Nausea [Unknown]
  - Thrombosis [Not Recovered/Not Resolved]
  - Cholelithiasis [Unknown]
  - Tooth infection [Unknown]
  - Speech disorder [Unknown]
  - Lung disorder [Not Recovered/Not Resolved]
